FAERS Safety Report 7788745-7 (Version None)
Quarter: 2011Q3

REPORT INFORMATION
  Report Type: 
  Country: None (occurrence: None)
  Receive Date: 20110928
  Receipt Date: 20110915
  Transmission Date: 20111222
  Serious: Yes (Hospitalization)
  Sender: FDA-Public Use
  Company Number: DSU-2011-06882

PATIENT
  Age: 9 Decade
  Sex: Female

DRUGS (1)
  1. AZOR [Suspect]
     Indication: HYPERTENSION
     Dosage: PER ORAL
     Route: 048
     Dates: end: 20110101

REACTIONS (2)
  - RENAL IMPAIRMENT [None]
  - AMNESIA [None]
